FAERS Safety Report 5121457-7 (Version None)
Quarter: 2006Q4

REPORT INFORMATION
  Report Type: 
  Country: None (occurrence: None)
  Receive Date: 20061003
  Receipt Date: 20060922
  Transmission Date: 20070319
  Serious: Yes (Hospitalization, Other)
  Sender: FDA-Public Use
  Company Number: 2006115193

PATIENT
  Age: 54 Year
  Sex: Male
  Weight: 72 kg

DRUGS (1)
  1. ATORVASTATIN CALCIUM [Suspect]
     Indication: BLOOD CHOLESTEROL INCREASED
     Dosage: 20 MG, ORAL
     Route: 048
     Dates: start: 19960101, end: 20060802

REACTIONS (16)
  - ADENOMA BENIGN [None]
  - ANGINA PECTORIS [None]
  - BLOOD PRESSURE INCREASED [None]
  - CARDIAC DISORDER [None]
  - DECREASED ACTIVITY [None]
  - DIZZINESS [None]
  - DRUG INEFFECTIVE [None]
  - HYPERHIDROSIS [None]
  - INFARCTION [None]
  - LABORATORY TEST ABNORMAL [None]
  - LIBIDO DISORDER [None]
  - NAUSEA [None]
  - PANIC ATTACK [None]
  - PHAEOCHROMOCYTOMA [None]
  - PSYCHOSOMATIC DISEASE [None]
  - TREATMENT NONCOMPLIANCE [None]
